FAERS Safety Report 10315633 (Version 2)
Quarter: 2014Q4

REPORT INFORMATION
  Report Type: Other
  Country: US (occurrence: US)
  Receive Date: 20140719
  Receipt Date: 20141223
  Transmission Date: 20150528
  Serious: Yes (Hospitalization, Other)
  Sender: FDA-Public Use
  Company Number: US-GSKPPD-2014GSK012440

PATIENT
  Age: 54 Year
  Sex: Male
  Weight: 138.92 kg

DRUGS (6)
  1. TOPROL XL [Concomitant]
     Active Substance: METOPROLOL SUCCINATE
     Route: 048
  2. AVANDIA [Suspect]
     Active Substance: ROSIGLITAZONE MALEATE
     Indication: DIABETES MELLITUS
     Dosage: AVANDIA WAS NOT LISTED AMONG THE PATIENT^S RECORDS REVIEWED.
     Route: 048
  3. AMIODARONE [Concomitant]
     Active Substance: AMIODARONE
     Route: 048
  4. ENTERIC COATED ASPIRIN [Concomitant]
     Active Substance: ASPIRIN
     Route: 048
  5. LASIX [Concomitant]
     Active Substance: FUROSEMIDE
     Route: 048
  6. LISINOPRIL. [Concomitant]
     Active Substance: LISINOPRIL
     Route: 048

REACTIONS (4)
  - Atrial fibrillation [Recovered/Resolved]
  - Coronary artery disease [Recovered/Resolved]
  - Cardiac failure congestive [Unknown]
  - Aortic stenosis [Recovered/Resolved]

NARRATIVE: CASE EVENT DATE: 20081030
